FAERS Safety Report 7720351-2 (Version None)
Quarter: 2011Q3

REPORT INFORMATION
  Report Type: 
  Country: None (occurrence: None)
  Receive Date: 20110830
  Receipt Date: 20110830
  Transmission Date: 20111222
  Serious: Yes (Disabling)
  Sender: FDA-Public Use
  Company Number: None

PATIENT
  Sex: Female
  Weight: 48.0813 kg

DRUGS (1)
  1. RISPERDAL [Suspect]
     Indication: ANGELMAN'S SYNDROME
     Dosage: 1 MG BID PO CURRENTLY ON GENERIC  3 MG QHS

REACTIONS (4)
  - AGITATION [None]
  - AGGRESSION [None]
  - PRODUCT SUBSTITUTION ISSUE [None]
  - ABNORMAL BEHAVIOUR [None]
